FAERS Safety Report 22713898 (Version 5)
Quarter: 2024Q2

REPORT INFORMATION
  Report Type: Report from Study
  Country: CN (occurrence: CN)
  Receive Date: 20230717
  Receipt Date: 20240401
  Transmission Date: 20240716
  Serious: Yes (Other)
  Sender: FDA-Public Use
  Company Number: CN-TAKEDA-2023TUS022638

PATIENT
  Age: 62 Year
  Sex: Female
  Weight: 60 kg

DRUGS (4)
  1. IXAZOMIB [Suspect]
     Active Substance: IXAZOMIB
     Indication: Plasma cell myeloma
     Dosage: 4 MILLIGRAM
     Route: 048
     Dates: start: 20220531
  2. DEXAMETHASONE [Suspect]
     Active Substance: DEXAMETHASONE
     Indication: Plasma cell myeloma
     Dosage: 20 MILLIGRAM
     Route: 048
     Dates: start: 20220531
  3. LENALIDOMIDE [Suspect]
     Active Substance: LENALIDOMIDE
     Indication: Plasma cell myeloma
     Dosage: 25 MILLIGRAM
     Route: 048
     Dates: start: 20220531
  4. LENALIDOMIDE [Suspect]
     Active Substance: LENALIDOMIDE
     Dosage: 12.5 MILLIGRAM
     Route: 048
     Dates: start: 20230509

REACTIONS (6)
  - Polyneuropathy [Not Recovered/Not Resolved]
  - Blood glucose increased [Recovered/Resolved]
  - Blood alkaline phosphatase decreased [Recovered/Resolved with Sequelae]
  - Blood phosphorus decreased [Recovered/Resolved]
  - Eosinophil percentage increased [Recovered/Resolved]
  - Basophil percentage increased [Recovered/Resolved with Sequelae]

NARRATIVE: CASE EVENT DATE: 20220801
